FAERS Safety Report 15732521 (Version 6)
Quarter: 2019Q3

REPORT INFORMATION
  Report Type: Spontaneous
  Country: US (occurrence: US)
  Receive Date: 20181217
  Receipt Date: 20190815
  Transmission Date: 20191004
  Serious: Yes (Hospitalization, Other)
  Sender: FDA-Public Use
  Company Number: US-VIFOR (INTERNATIONAL) INC.-VIT-2018-12259

PATIENT
  Age: 72 Year
  Sex: Male

DRUGS (23)
  1. DIOVAN [Concomitant]
     Active Substance: VALSARTAN
  2. VASOTEC [Concomitant]
     Active Substance: ENALAPRIL MALEATE
  3. TORSEMIDE. [Concomitant]
     Active Substance: TORSEMIDE
  4. SYNTHROID [Concomitant]
     Active Substance: LEVOTHYROXINE SODIUM
     Indication: THYROID DISORDER
  5. VELTASSA [Suspect]
     Active Substance: PATIROMER
     Indication: HYPERKALAEMIA
     Route: 048
     Dates: start: 20160617
  6. ELIQUIS [Concomitant]
     Active Substance: APIXABAN
  7. VELTASSA [Suspect]
     Active Substance: PATIROMER
     Dosage: DOSE INCREASED
     Dates: start: 20190519
  8. MYFORTIC [Concomitant]
     Active Substance: MYCOPHENOLATE SODIUM
  9. NITROGLYCERIN. [Concomitant]
     Active Substance: NITROGLYCERIN
  10. TRADJENTA [Concomitant]
     Active Substance: LINAGLIPTIN
  11. ZANTAC [Concomitant]
     Active Substance: RANITIDINE HYDROCHLORIDE
  12. EPIPEN [Concomitant]
     Active Substance: EPINEPHRINE
  13. NITRO-DUR [Concomitant]
     Active Substance: NITROGLYCERIN
  14. PREDNISONE. [Concomitant]
     Active Substance: PREDNISONE
  15. B6 [Concomitant]
     Active Substance: PYRIDOXINE HYDROCHLORIDE
  16. VELTASSA [Suspect]
     Active Substance: PATIROMER
  17. IMURAN [Concomitant]
     Active Substance: AZATHIOPRINE
  18. LOVAZA [Concomitant]
     Active Substance: OMEGA-3-ACID ETHYL ESTERS
  19. BETAPACE [Concomitant]
     Active Substance: SOTALOL HYDROCHLORIDE
  20. KEPPRA [Concomitant]
     Active Substance: LEVETIRACETAM
  21. METANX [Concomitant]
     Active Substance: LEVOMEFOLATE CALCIUM\METHYLCOBALAMIN\PYRIDOXAL PHOSPHATE ANHYDROUS
  22. LIPITOR [Concomitant]
     Active Substance: ATORVASTATIN CALCIUM
  23. STARLIX [Concomitant]
     Active Substance: NATEGLINIDE

REACTIONS (11)
  - Asthenia [Unknown]
  - Blood potassium abnormal [Unknown]
  - Product taste abnormal [Unknown]
  - Cerebrovascular accident [Unknown]
  - Drug ineffective [Unknown]
  - Seizure [Unknown]
  - Dizziness [Recovered/Resolved]
  - Blood potassium increased [Recovered/Resolved]
  - Off label use [Unknown]
  - Malaise [Unknown]
  - Aortic valve replacement [Unknown]

NARRATIVE: CASE EVENT DATE: 201811
